FAERS Safety Report 5405455-1 (Version None)
Quarter: 2007Q3

REPORT INFORMATION
  Report Type: 
  Country: None (occurrence: None)
  Receive Date: 20070803
  Receipt Date: 20070723
  Transmission Date: 20080115
  Serious: Yes (Other)
  Sender: FDA-Public Use
  Company Number: US-PFIZER INC-2007047490

PATIENT
  Sex: Female
  Weight: 74.4 kg

DRUGS (7)
  1. CHANTIX [Suspect]
     Indication: SMOKING CESSATION THERAPY
     Dates: start: 20070531, end: 20070601
  2. FOLIC ACID [Concomitant]
  3. OMEPRAZOLE [Concomitant]
  4. HYDROCODONE BITARTRATE [Concomitant]
  5. THIAMINE HCL [Concomitant]
  6. MULTI-VITAMINS [Concomitant]
  7. HYDROCHLOROTHIAZIDE [Concomitant]

REACTIONS (3)
  - INCORRECT DOSE ADMINISTERED [None]
  - INSOMNIA [None]
  - KNEE OPERATION [None]
